FAERS Safety Report 12927951 (Version 1)
Quarter: 2016Q4

REPORT INFORMATION
  Report Type: Spontaneous
  Country: US (occurrence: US)
  Receive Date: 20161110
  Receipt Date: 20161110
  Transmission Date: 20170207
  Serious: Yes (Hospitalization)
  Sender: FDA-Public Use
  Company Number: None

PATIENT
  Age: 72 Year
  Sex: Female
  Weight: 120.7 kg

DRUGS (11)
  1. LEXAPRO [Concomitant]
     Active Substance: ESCITALOPRAM OXALATE
  2. VOLTAREN [Suspect]
     Active Substance: DICLOFENAC SODIUM
     Indication: OSTEOARTHRITIS
     Dosage: DATE OF USE CHRONIC?50MG EC
     Route: 048
  3. NEURON [Concomitant]
  4. LOTREL [Suspect]
     Active Substance: AMLODIPINE BESYLATE\BENAZEPRIL HYDROCHLORIDE
     Indication: HYPERTENSION
     Dosage: DATE OF USE CHRONIC?10-20MG
     Route: 048
  5. WELLBUTRIN XL [Concomitant]
     Active Substance: BUPROPION HYDROCHLORIDE
  6. VITAMIN D2 [Concomitant]
     Active Substance: ERGOCALCIFEROL
  7. ALLOPURINOL. [Concomitant]
     Active Substance: ALLOPURINOL
  8. ASA [Concomitant]
     Active Substance: ASPIRIN
  9. ALPHAGAN P [Concomitant]
     Active Substance: BRIMONIDINE TARTRATE
  10. TRUSOPT [Concomitant]
     Active Substance: DORZOLAMIDE HYDROCHLORIDE
  11. LASIX [Concomitant]
     Active Substance: FUROSEMIDE

REACTIONS (3)
  - Hyperkalaemia [None]
  - Dehydration [None]
  - Acute kidney injury [None]

NARRATIVE: CASE EVENT DATE: 20150903
